FAERS Safety Report 5169918-9 (Version None)
Quarter: 2006Q4

REPORT INFORMATION
  Report Type: 
  Country: None (occurrence: None)
  Receive Date: 20061212
  Receipt Date: 20061127
  Transmission Date: 20070319
  Serious: Yes (Hospitalization, Other)
  Sender: FDA-Public Use
  Company Number: US-ELI_LILLY_AND_COMPANY-US200611004797

PATIENT
  Age: 53 Year
  Sex: Female

DRUGS (4)
  1. CYMBALTA [Suspect]
     Indication: DEPRESSION
     Dosage: 20 MG, UNK
     Route: 048
     Dates: end: 20060801
  2. AMBIEN [Concomitant]
  3. INTRON A [Concomitant]
     Indication: HEPATITIS C
     Dosage: 150 UG, WEEKLY (1/W)
     Route: 058
     Dates: start: 20060414, end: 20060801
  4. RIBAVIRIN [Concomitant]
     Indication: HEPATITIS C
     Dosage: 1000 MG, DAILY (1/D)
     Route: 048
     Dates: start: 20060414

REACTIONS (6)
  - ALOPECIA [None]
  - BLOOD POTASSIUM DECREASED [None]
  - CONFUSIONAL STATE [None]
  - DRUG INTERACTION [None]
  - PSYCHOTIC DISORDER [None]
  - VOMITING [None]
